FAERS Safety Report 6691017-5 (Version None)
Quarter: 2010Q2

REPORT INFORMATION
  Report Type: 
  Country: None (occurrence: None)
  Receive Date: 20100421
  Receipt Date: 20100412
  Transmission Date: 20101027
  Serious: Yes (Hospitalization, Other)
  Sender: FDA-Public Use
  Company Number: US-MERCK-0904USA03006

PATIENT
  Age: 60 Year
  Sex: Female

DRUGS (3)
  1. FOSAMAX [Suspect]
     Indication: OSTEOPOROSIS
     Route: 048
     Dates: start: 20040101
  2. ZOMETA [Suspect]
     Indication: BONE NEOPLASM MALIGNANT
     Route: 042
     Dates: start: 20060101, end: 20071009
  3. ZOMETA [Suspect]
     Route: 042
     Dates: end: 20081117

REACTIONS (32)
  - ABSCESS ORAL [None]
  - ANXIETY [None]
  - BACK PAIN [None]
  - BONE DENSITY DECREASED [None]
  - BREAST CANCER METASTATIC [None]
  - CANDIDIASIS [None]
  - CHEST DISCOMFORT [None]
  - DEHYDRATION [None]
  - DEPRESSION [None]
  - DIARRHOEA [None]
  - DRUG HYPERSENSITIVITY [None]
  - DRY MOUTH [None]
  - EDENTULOUS [None]
  - EXOSTOSIS [None]
  - FISTULA [None]
  - FISTULA DISCHARGE [None]
  - GASTRITIS [None]
  - GINGIVAL BLEEDING [None]
  - GINGIVAL DISORDER [None]
  - IMPAIRED HEALING [None]
  - LOWER GASTROINTESTINAL HAEMORRHAGE [None]
  - METASTASES TO BONE [None]
  - NAUSEA [None]
  - ORAL DISORDER [None]
  - ORAL INFECTION [None]
  - OSTEOMYELITIS [None]
  - OSTEONECROSIS [None]
  - OSTEORADIONECROSIS [None]
  - PAROTID GLAND ENLARGEMENT [None]
  - STOMATITIS [None]
  - TOOTH ABSCESS [None]
  - VOMITING [None]
